FAERS Safety Report 5260789-9 (Version None)
Quarter: 2007Q1

REPORT INFORMATION
  Report Type: 
  Country: None (occurrence: None)
  Receive Date: 20070309
  Receipt Date: 20070219
  Transmission Date: 20070707
  Serious: Yes (Other)
  Sender: FDA-Public Use
  Company Number: JP-MERCK-0702USA03963

PATIENT
  Age: 41 Year
  Sex: Male
  Weight: 65 kg

DRUGS (3)
  1. PROPECIA [Suspect]
     Route: 048
     Dates: start: 20060124, end: 20070119
  2. PROPECIA [Suspect]
     Route: 048
     Dates: start: 20070120
  3. [THERAPY UNSPECIFIED] [Concomitant]
     Route: 065

REACTIONS (1)
  - EPISTAXIS [None]
